FAERS Safety Report 23077243 (Version 1)
Quarter: 2023Q4

REPORT INFORMATION
  Report Type: Spontaneous
  Country: US (occurrence: US)
  Receive Date: 20231018
  Receipt Date: 20231018
  Transmission Date: 20240109
  Serious: Yes (Death, Other)
  Sender: FDA-Public Use
  Company Number: US-BRISTOL-MYERS SQUIBB COMPANY-2023-147778

PATIENT
  Age: 38 Year
  Sex: Male

DRUGS (4)
  1. SPRYCEL [Suspect]
     Active Substance: DASATINIB
     Indication: Brain neoplasm malignant
     Route: 048
     Dates: start: 202306
  2. SPRYCEL [Suspect]
     Active Substance: DASATINIB
     Indication: Hypokalaemia
  3. SPRYCEL [Suspect]
     Active Substance: DASATINIB
     Indication: Seizure
  4. EVEROLIMUS [Concomitant]
     Active Substance: EVEROLIMUS
     Indication: Product used for unknown indication

REACTIONS (2)
  - Death [Fatal]
  - Off label use [Unknown]

NARRATIVE: CASE EVENT DATE: 20231001
